FAERS Safety Report 5617266-2 (Version None)
Quarter: 2008Q1

REPORT INFORMATION
  Report Type: 
  Country: None (occurrence: None)
  Receive Date: 20080207
  Receipt Date: 20070619
  Transmission Date: 20080703
  Serious: No
  Sender: FDA-Public Use
  Company Number: A0658245A

PATIENT

DRUGS (2)
  1. PAROXETINE [Suspect]
     Indication: DEPRESSION
     Dosage: 20MG PER DAY
     Route: 048
     Dates: start: 20040101
  2. ASPIRIN [Suspect]
     Dosage: 81MG PER DAY
     Route: 048
     Dates: start: 20050101

REACTIONS (2)
  - INCREASED TENDENCY TO BRUISE [None]
  - PHARMACEUTICAL PRODUCT COMPLAINT [None]
